FAERS Safety Report 18855797 (Version 1)
Quarter: 2021Q1

REPORT INFORMATION
  Report Type: Spontaneous
  Country: US (occurrence: US)
  Receive Date: 20210206
  Receipt Date: 20210206
  Transmission Date: 20210420
  Serious: No
  Sender: FDA-Public Use
  Company Number: US-009507513-2101USA011076

PATIENT
  Age: 19 Year
  Weight: 156 kg

DRUGS (1)
  1. NEXPLANON [Suspect]
     Active Substance: ETONOGESTREL
     Dosage: 1 DOSAGE FORM, LEFT ARM
     Route: 059
     Dates: start: 20180130, end: 20210122

REACTIONS (3)
  - Menstruation irregular [Unknown]
  - Complication associated with device [Recovered/Resolved]
  - Complication of device removal [Recovered/Resolved]

NARRATIVE: CASE EVENT DATE: 20210122
